FAERS Safety Report 20751934 (Version 1)
Quarter: 2022Q2

REPORT INFORMATION
  Report Type: Spontaneous
  Country: CN (occurrence: CN)
  Receive Date: 20220426
  Receipt Date: 20220426
  Transmission Date: 20220721
  Serious: Yes (Other)
  Sender: FDA-Public Use
  Company Number: CN-PFIZER INC-202200617275

PATIENT
  Age: 56 Year
  Sex: Female
  Weight: 58 kg

DRUGS (2)
  1. CYTARABINE [Suspect]
     Active Substance: CYTARABINE
     Indication: Chemotherapy
     Dosage: 0.1 G, 2X/DAY (IH Q12H)
     Route: 058
     Dates: start: 20220403, end: 20220413
  2. ETOPOSIDE [Suspect]
     Active Substance: ETOPOSIDE

REACTIONS (2)
  - Platelet count decreased [Recovering/Resolving]
  - Full blood count decreased [Recovering/Resolving]

NARRATIVE: CASE EVENT DATE: 20220419
